FAERS Safety Report 15256885 (Version 2)
Quarter: 2018Q3

REPORT INFORMATION
  Report Type: Report from Study
  Country: US (occurrence: US)
  Receive Date: 20180808
  Receipt Date: 20180817
  Transmission Date: 20181010
  Serious: Yes (Life-Threatening, Hospitalization, Other)
  Sender: FDA-Public Use
  Company Number: US-ACTELION-A-NJ2018-177090

PATIENT
  Age: 74 Year
  Sex: Male
  Weight: 80.73 kg

DRUGS (2)
  1. TRACLEER [Suspect]
     Active Substance: BOSENTAN
     Indication: PULMONARY HYPERTENSION
     Dosage: 125 MG, BID
     Route: 048
  2. ESBRIET [Concomitant]
     Active Substance: PIRFENIDONE

REACTIONS (3)
  - Concomitant disease progression [Unknown]
  - Pulmonary fibrosis [Unknown]
  - Lung transplant [Unknown]

NARRATIVE: CASE EVENT DATE: 20180716
